FAERS Safety Report 9500527 (Version 1)
Quarter: 2013Q3

REPORT INFORMATION
  Report Type: Spontaneous
  Country: US (occurrence: None)
  Receive Date: 20130904
  Receipt Date: 20130904
  Transmission Date: 20140515
  Serious: Yes (Other)
  Sender: FDA-Public Use
  Company Number: None

PATIENT
  Age: 63 None
  Sex: Female
  Weight: 52.16 kg

DRUGS (5)
  1. DOXYCYCLINE HYCLATE [Suspect]
     Indication: HAEMOPTYSIS
     Route: 048
     Dates: start: 20130801, end: 20130804
  2. PRILOSEC [Concomitant]
  3. ESTRACE CREME [Concomitant]
  4. TUMS [Concomitant]
  5. MULTIVITAMIN (CHILDRENS) [Concomitant]

REACTIONS (6)
  - Blister [None]
  - Neuralgia [None]
  - Arthralgia [None]
  - Scar [None]
  - Skin warm [None]
  - Palpitations [None]
